FAERS Safety Report 9442771 (Version 1)
Quarter: 2013Q3

REPORT INFORMATION
  Report Type: Spontaneous
  Country: US (occurrence: US)
  Receive Date: 20130806
  Receipt Date: 20130806
  Transmission Date: 20140515
  Serious: No
  Sender: FDA-Public Use
  Company Number: US-ABBOTT-13P-163-1073436-00

PATIENT
  Age: 16 Year
  Sex: Female

DRUGS (10)
  1. DEPAKOTE ER [Suspect]
     Indication: EPILEPSY
     Dates: start: 20121002
  2. MULTIVITAMIN [Concomitant]
     Indication: PRODUCT USED FOR UNKNOWN INDICATION
  3. KLONOPIN [Concomitant]
     Indication: EPILEPSY
  4. KEPPRA [Concomitant]
     Indication: EPILEPSY
  5. LAMICTAL [Concomitant]
     Indication: EPILEPSY
  6. ZOLOFT [Concomitant]
     Indication: ANXIETY
  7. CARNITOR [Concomitant]
     Indication: PRODUCT USED FOR UNKNOWN INDICATION
  8. DIASTAT [Concomitant]
     Indication: EPILEPSY
  9. VERSED [Concomitant]
     Indication: EPILEPSY
  10. LASIX [Concomitant]
     Indication: OEDEMA

REACTIONS (4)
  - Hair growth abnormal [Not Recovered/Not Resolved]
  - Alopecia [Not Recovered/Not Resolved]
  - Weight increased [Not Recovered/Not Resolved]
  - Tremor [Not Recovered/Not Resolved]
